FAERS Safety Report 16734182 (Version 1)
Quarter: 2019Q3

REPORT INFORMATION
  Report Type: Spontaneous
  Country: PL (occurrence: PL)
  Receive Date: 20190823
  Receipt Date: 20190823
  Transmission Date: 20191005
  Serious: Yes (Other)
  Sender: FDA-Public Use
  Company Number: PL-ACCORD-152309

PATIENT
  Age: 86 Year
  Sex: Female

DRUGS (2)
  1. KWETAPLEX [Suspect]
     Active Substance: QUETIAPINE FUMARATE
     Indication: PRODUCT USED FOR UNKNOWN INDICATION
     Dosage: DOSE UNKNOWN- DURING DISCHARGE FROM HOSPITAL DOSE INCREASED 1-2
  2. AMLODIPINE [Suspect]
     Active Substance: AMLODIPINE BESYLATE
     Indication: PRODUCT USED FOR UNKNOWN INDICATION
     Dosage: STRENGTH: 10 MG?DOSE UNKNOWN

REACTIONS (21)
  - Fear [Unknown]
  - Dry mouth [Unknown]
  - Hyperaesthesia [Unknown]
  - Eyelid oedema [Unknown]
  - Face oedema [Unknown]
  - Disorientation [Unknown]
  - Seizure [Unknown]
  - Diarrhoea [Unknown]
  - Constipation [Unknown]
  - Speech disorder [Unknown]
  - Erythema [Unknown]
  - Arthralgia [Unknown]
  - Dizziness [Unknown]
  - Muscle spasms [Unknown]
  - Somnolence [Unknown]
  - Oedema peripheral [Unknown]
  - Pharyngeal oedema [Unknown]
  - Screaming [Unknown]
  - Circulatory collapse [Unknown]
  - Syncope [Unknown]
  - Hallucination [Unknown]
